FAERS Safety Report 7904987-1 (Version None)
Quarter: 2011Q4

REPORT INFORMATION
  Report Type: 
  Country: None (occurrence: None)
  Receive Date: 20111109
  Receipt Date: 20111103
  Transmission Date: 20120403
  Serious: Yes (Death, Hospitalization)
  Sender: FDA-Public Use
  Company Number: PHHO2011DE06158

PATIENT
  Sex: Female
  Weight: 79 kg

DRUGS (11)
  1. FTY [Suspect]
     Indication: MULTIPLE SCLEROSIS
     Dosage: 0.5 MG, QD
     Route: 048
     Dates: start: 20110204, end: 20110402
  2. LOSARTAN POTASSIUM [Concomitant]
  3. PK-MERZ [Concomitant]
  4. METHYLPREDNISOLONE [Concomitant]
  5. MIRTAZAPINE [Concomitant]
  6. SIMVAR [Concomitant]
  7. LYRICA [Concomitant]
  8. NEURONTIN [Concomitant]
  9. LEVOTHYROXINE SODIUM [Concomitant]
  10. LAXOBERAL [Concomitant]
  11. SIMVASTATIN [Concomitant]

REACTIONS (1)
  - MYOCARDIAL INFARCTION [None]
